FAERS Safety Report 20296282 (Version 1)
Quarter: 2022Q1

REPORT INFORMATION
  Report Type: Spontaneous
  Country: FR (occurrence: FR)
  Receive Date: 20220105
  Receipt Date: 20220105
  Transmission Date: 20220423
  Serious: Yes (Life-Threatening, Hospitalization, Other)
  Sender: FDA-Public Use
  Company Number: FR-AFSSAPS-AVPA20210880

PATIENT
  Age: 79 Year
  Sex: Male
  Weight: 62 kg

DRUGS (1)
  1. TRAMADOL [Suspect]
     Active Substance: TRAMADOL
     Indication: Product used for unknown indication
     Dosage: PRECRIT AT THE RATE OF 1 CP EVERY 6 HOURS OR 4 TIMES A DA
     Route: 048
     Dates: start: 20210918, end: 20210928

REACTIONS (5)
  - Delirium [Recovering/Resolving]
  - Hallucination [Recovering/Resolving]
  - Logorrhoea [Recovering/Resolving]
  - Confusional state [Recovering/Resolving]
  - Agitation [Recovering/Resolving]

NARRATIVE: CASE EVENT DATE: 20210901
